FAERS Safety Report 8935309 (Version 1)
Quarter: 2012Q4

REPORT INFORMATION
  Report Type: 
  Country: FR (occurrence: FR)
  Receive Date: 20121129
  Receipt Date: 20121129
  Transmission Date: 20130627
  Serious: Yes (Other)
  Sender: FDA-Public Use
  Company Number: FR-GLAXOSMITHKLINE-B0848168A

PATIENT
  Sex: Female

DRUGS (2)
  1. LAMICTAL [Suspect]
     Indication: PETIT MAL EPILEPSY
     Dosage: 100MG Twice per day
     Route: 048
     Dates: start: 201105
  2. KEPPRA [Suspect]
     Indication: PETIT MAL EPILEPSY
     Dosage: 500MG Twice per day
     Route: 048
     Dates: start: 201203

REACTIONS (2)
  - Generalised non-convulsive epilepsy [Not Recovered/Not Resolved]
  - Drug intolerance [None]
